FAERS Safety Report 6926248-X (Version None)
Quarter: 2010Q3

REPORT INFORMATION
  Report Type: 
  Country: None (occurrence: None)
  Receive Date: 20100816
  Receipt Date: 20100802
  Transmission Date: 20110219
  Serious: Yes (Other)
  Sender: FDA-Public Use
  Company Number: DE-MYLANLABS-2010S1014031

PATIENT
  Age: 80 Year
  Sex: Male
  Weight: 71 kg

DRUGS (1)
  1. AZATHIOPRIN [Suspect]
     Indication: PRODUCT USED FOR UNKNOWN INDICATION

REACTIONS (2)
  - HAEMOLYTIC ANAEMIA [None]
  - PANCYTOPENIA [None]
